FAERS Safety Report 12665701 (Version 1)
Quarter: 2016Q3

REPORT INFORMATION
  Report Type: Spontaneous
  Country: CZ (occurrence: CZ)
  Receive Date: 20160818
  Receipt Date: 20160818
  Transmission Date: 20161109
  Serious: Yes (Other)
  Sender: FDA-Public Use
  Company Number: CZ-ALLERGAN-1666134US

PATIENT
  Age: 31 Year
  Sex: Female

DRUGS (3)
  1. LEVOSERT [Suspect]
     Active Substance: LEVONORGESTREL
     Indication: CONTRACEPTION
     Dosage: UNK, SINGLE
     Route: 015
     Dates: start: 20160314, end: 20160808
  2. AGEN [Concomitant]
     Indication: HYPERTENSION
     Route: 065
  3. PRESTARIUM [Concomitant]
     Active Substance: PERINDOPRIL
     Indication: HYPERTENSION
     Route: 065

REACTIONS (1)
  - Menorrhagia [Unknown]
